FAERS Safety Report 7769080-X (Version None)
Quarter: 2011Q3

REPORT INFORMATION
  Report Type: 
  Country: None (occurrence: None)
  Receive Date: 20110922
  Receipt Date: 20110413
  Transmission Date: 20111222
  Serious: Yes (Other)
  Sender: FDA-Public Use
  Company Number: US-ASTRAZENECA-2009UW21582

PATIENT
  Age: 20 Year
  Sex: Male
  Weight: 85.7 kg

DRUGS (10)
  1. NAPROXEN [Concomitant]
     Dates: start: 20030428
  2. ABILIFY [Concomitant]
     Dates: start: 20080826
  3. SEROQUEL [Suspect]
     Indication: SCHIZOPHRENIA
     Route: 048
     Dates: start: 20040101, end: 20080101
  4. LORATADINE [Concomitant]
     Dates: start: 20100703
  5. DEPAKOTE [Concomitant]
     Dates: start: 20100726
  6. FAMOTIDINE [Concomitant]
     Dates: start: 20030919
  7. ACIPHEX [Concomitant]
     Dates: start: 20031015
  8. LEXAPRO [Concomitant]
     Dates: start: 20040226
  9. PREDNISONE [Concomitant]
     Dates: start: 20030220
  10. SEROQUEL [Suspect]
     Dosage: 100 MG, 200 MG DISPENSED
     Route: 048
     Dates: start: 20040226

REACTIONS (3)
  - DIABETIC KETOACIDOSIS [None]
  - TYPE 2 DIABETES MELLITUS [None]
  - WEIGHT INCREASED [None]
